FAERS Safety Report 10130338 (Version 1)
Quarter: 2014Q2

REPORT INFORMATION
  Report Type: Spontaneous
  Country: US (occurrence: US)
  Receive Date: 20140428
  Receipt Date: 20140428
  Transmission Date: 20141212
  Serious: Yes (Other)
  Sender: FDA-Public Use
  Company Number: US-SA-2014SA051995

PATIENT
  Age: 15 Year
  Sex: Male

DRUGS (3)
  1. ALLEGRA 24 HOUR [Suspect]
     Indication: CHRONIC SPONTANEOUS URTICARIA
     Dosage: 7 ALLERGA 24 HOUR PER DAY
     Route: 048
     Dates: start: 2013
  2. RANITIDINE [Concomitant]
     Dosage: 1 RANITIDINE
     Route: 065
  3. HYDROXYZINE [Concomitant]
     Route: 065

REACTIONS (3)
  - Drug dependence [Unknown]
  - Malaise [Unknown]
  - Extra dose administered [Unknown]
